FAERS Safety Report 23916359 (Version 1)
Quarter: 2024Q2

REPORT INFORMATION
  Report Type: Spontaneous
  Country: US (occurrence: None)
  Receive Date: 20240529
  Receipt Date: 20240529
  Transmission Date: 20240716
  Serious: No
  Sender: FDA-Public Use
  Company Number: None

PATIENT
  Sex: Male

DRUGS (1)
  1. XDEMVY [Suspect]
     Active Substance: LOTILANER
     Indication: Blepharitis
     Dosage: OTHER QUANTITY : 1 DROP BOTH EYES;?FREQUENCY : EVERY 12 HOURS;?
     Route: 047
     Dates: start: 202405

REACTIONS (1)
  - Hypersensitivity [None]
